FAERS Safety Report 16479133 (Version 1)
Quarter: 2019Q2

REPORT INFORMATION
  Report Type: Spontaneous
  Country: US (occurrence: US)
  Receive Date: 20190626
  Receipt Date: 20190626
  Transmission Date: 20190711
  Serious: Yes (Other)
  Sender: FDA-Public Use
  Company Number: US-SAOL THERAPEUTICS-2018SAO01072

PATIENT
  Age: 51 Year
  Sex: Male
  Weight: 113.38 kg

DRUGS (2)
  1. LIORESAL [Suspect]
     Active Substance: BACLOFEN
     Indication: PARAPARESIS
     Dosage: 566.3 ?G, \DAY
     Route: 037
     Dates: start: 201011
  2. LIORESAL [Suspect]
     Active Substance: BACLOFEN
     Indication: CLONUS
     Dosage: 100 ?G, \DAY
     Route: 037

REACTIONS (8)
  - Overdose [Unknown]
  - Muscle spasticity [Recovered/Resolved]
  - Complication associated with device [Recovered/Resolved]
  - Hypotonia [Unknown]
  - Therapeutic response decreased [Recovered/Resolved]
  - Implant site pain [Recovered/Resolved]
  - Nausea [Unknown]
  - Clonus [Recovered/Resolved]

NARRATIVE: CASE EVENT DATE: 20181101
